FAERS Safety Report 16059830 (Version 1)
Quarter: 2019Q2

REPORT INFORMATION
  Report Type: Spontaneous
  Country: US (occurrence: US)
  Receive Date: 20190311
  Receipt Date: 20190311
  Transmission Date: 20190711
  Serious: Yes (Death)
  Sender: FDA-Public Use
  Company Number: None

PATIENT
  Sex: Female

DRUGS (1)
  1. TRETINOIN 0.1% EX CREAM [Suspect]
     Active Substance: TRETINOIN

REACTIONS (1)
  - Death [None]
